FAERS Safety Report 8419225-3 (Version None)
Quarter: 2012Q2

REPORT INFORMATION
  Report Type: 
  Country: None (occurrence: None)
  Receive Date: 20120607
  Receipt Date: 20120529
  Transmission Date: 20120825
  Serious: Yes (Other)
  Sender: FDA-Public Use
  Company Number: GB-JNJFOC-20120514872

PATIENT
  Sex: Female

DRUGS (3)
  1. SIMPONI [Suspect]
     Indication: PRODUCT USED FOR UNKNOWN INDICATION
     Route: 058
     Dates: start: 20120422
  2. SIMPONI [Suspect]
     Route: 058
  3. SIMPONI [Suspect]
     Route: 058
     Dates: start: 20120522

REACTIONS (4)
  - MICTURITION FREQUENCY DECREASED [None]
  - ABDOMINAL DISTENSION [None]
  - INCREASED TENDENCY TO BRUISE [None]
  - PAIN IN EXTREMITY [None]
